FAERS Safety Report 22182473 (Version 1)
Quarter: 2023Q2

REPORT INFORMATION
  Report Type: Spontaneous
  Country: None (occurrence: CZ)
  Receive Date: 20230406
  Receipt Date: 20230406
  Transmission Date: 20230722
  Serious: Yes (Hospitalization, Other)
  Sender: FDA-Public Use
  Company Number: CZ-B.Braun Medical Inc.-2140003

PATIENT
  Age: 86 Year
  Sex: Female

DRUGS (54)
  1. ACETAMINOPHEN [Suspect]
     Active Substance: ACETAMINOPHEN
     Indication: Pain
  2. ALPRAZOLAM [Concomitant]
     Active Substance: ALPRAZOLAM
  3. CAPTOPRIL [Concomitant]
     Active Substance: CAPTOPRIL
  4. CAPTOPRIL [Concomitant]
     Active Substance: CAPTOPRIL
  5. FENTANYL [Suspect]
     Active Substance: FENTANYL
  6. METOPROLOL [Suspect]
     Active Substance: METOPROLOL
  7. DONEPEZIL HYDROCHLORIDE [Suspect]
     Active Substance: DONEPEZIL HYDROCHLORIDE
  8. IBUPROFEN [Suspect]
     Active Substance: IBUPROFEN
  9. PREGABALIN [Suspect]
     Active Substance: PREGABALIN
  10. PANTOPRAZOLE [Suspect]
     Active Substance: PANTOPRAZOLE
  11. SODIUM PICOSULFATE [Suspect]
     Active Substance: SODIUM PICOSULFATE
  12. AMIODARONE [Suspect]
     Active Substance: AMIODARONE
  13. AMLODIPINE BESYLATE [Suspect]
     Active Substance: AMLODIPINE BESYLATE
  14. LEVOTHYROXINE [Suspect]
     Active Substance: LEVOTHYROXINE
  15. MELOXICAM [Suspect]
     Active Substance: MELOXICAM
  16. ZOLPIDEM TARTRATE [Suspect]
     Active Substance: ZOLPIDEM TARTRATE
  17. CALCIUM\CHOLECALCIFEROL [Suspect]
     Active Substance: CALCIUM\CHOLECALCIFEROL
  18. PREDNISONE [Suspect]
     Active Substance: PREDNISONE
  19. HYDROCHLOROTHIAZIDE\TELMISARTAN [Suspect]
     Active Substance: HYDROCHLOROTHIAZIDE\TELMISARTAN
  20. ROSUVASTATIN [Suspect]
     Active Substance: ROSUVASTATIN
  21. MAGNESIUM ASPARTATE\POTASSIUM ASPARTATE [Suspect]
     Active Substance: MAGNESIUM ASPARTATE\POTASSIUM ASPARTATE
  22. TELMISARTAN [Suspect]
     Active Substance: TELMISARTAN
  23. CHONDROITIN SULFATE SODIUM NOS [Suspect]
     Active Substance: CHONDROITIN SULFATE SODIUM NOS
  24. TRAMADOL [Suspect]
     Active Substance: TRAMADOL
  25. UNSPECIFIED INGREDIENT [Suspect]
     Active Substance: UNSPECIFIED INGREDIENT
  26. METOPROLOL SUCCINATE [Interacting]
     Active Substance: METOPROLOL SUCCINATE
  27. METHOTREXATE SODIUM [Interacting]
     Active Substance: METHOTREXATE SODIUM
  28. PREDNISONE [Interacting]
     Active Substance: PREDNISONE
  29. EUTHYROX [Interacting]
     Active Substance: LEVOTHYROXINE SODIUM
  30. UNSPECIFIED INGREDIENT [Interacting]
     Active Substance: UNSPECIFIED INGREDIENT
  31. ALPRAZOLAM [Interacting]
     Active Substance: ALPRAZOLAM
  32. FENTANYL [Interacting]
     Active Substance: FENTANYL
  33. MELOXICAM [Interacting]
     Active Substance: MELOXICAM
  34. UNSPECIFIED INGREDIENT [Interacting]
     Active Substance: UNSPECIFIED INGREDIENT
  35. TRAZODONE [Interacting]
     Active Substance: TRAZODONE HYDROCHLORIDE
  36. AMLODIPINE BESYLATE [Interacting]
     Active Substance: AMLODIPINE BESYLATE
  37. OMEPRAZOLE [Interacting]
     Active Substance: OMEPRAZOLE
  38. ZOLPIDEM TARTRATE [Interacting]
     Active Substance: ZOLPIDEM TARTRATE
  39. CORDARONE [Interacting]
     Active Substance: AMIODARONE HYDROCHLORIDE
  40. METAMIZOLE [Interacting]
     Active Substance: METAMIZOLE
  41. TELMISARTAN [Interacting]
     Active Substance: TELMISARTAN
  42. ELIQUIS [Interacting]
     Active Substance: APIXABAN
  43. CONTROLOC [Interacting]
     Active Substance: PANTOPRAZOLE SODIUM
  44. POTASSIUM ASPARTATE [Interacting]
     Active Substance: POTASSIUM ASPARTATE
  45. SODIUM CHONDROITIN SULFATE [Interacting]
     Active Substance: SODIUM CHONDROITIN SULFATE
  46. CAPTOPRIL [Interacting]
     Active Substance: CAPTOPRIL
  47. FOLIC ACID [Interacting]
     Active Substance: FOLIC ACID
  48. CALCIUM\CHOLECALCIFEROL [Interacting]
     Active Substance: CALCIUM\CHOLECALCIFEROL
  49. GUAIFENESIN [Interacting]
     Active Substance: GUAIFENESIN
  50. SODIUM PICOSULFATE [Interacting]
     Active Substance: SODIUM PICOSULFATE
  51. OXAZEPAM [Interacting]
     Active Substance: OXAZEPAM
  52. ROSUVASTATIN CALCIUM [Interacting]
     Active Substance: ROSUVASTATIN CALCIUM
  53. METOPROLOL [Interacting]
     Active Substance: METOPROLOL
  54. MAGNESIUM ASPARTATE\POTASSIUM ASPARTATE [Interacting]
     Active Substance: MAGNESIUM ASPARTATE\POTASSIUM ASPARTATE

REACTIONS (44)
  - Intentional overdose [Recovered/Resolved]
  - Drug abuse [Recovered/Resolved]
  - Medication error [Recovered/Resolved]
  - Overdose [Recovered/Resolved]
  - Prescription drug used without a prescription [Unknown]
  - Incorrect dose administered [Unknown]
  - Drug interaction [Recovered/Resolved]
  - Discomfort [Recovered/Resolved]
  - Nausea [Recovered/Resolved]
  - Vertigo [Recovered/Resolved]
  - Apathy [Recovered/Resolved]
  - Anxiety [Recovered/Resolved]
  - Loss of personal independence in daily activities [Recovered/Resolved]
  - General physical health deterioration [Recovering/Resolving]
  - Atrial fibrillation [Recovered/Resolved]
  - Liver function test increased [Recovered/Resolved]
  - Delirium [Recovered/Resolved]
  - Condition aggravated [Recovered/Resolved]
  - Bedridden [Recovered/Resolved]
  - Immobile [Recovered/Resolved]
  - Hypokalaemia [Recovered/Resolved]
  - Urinary retention [Recovered/Resolved]
  - Hyponatraemia [Recovered/Resolved]
  - Confusional state [Recovered/Resolved]
  - Oxygen saturation decreased [Recovered/Resolved]
  - Restlessness [Recovered/Resolved]
  - Mobility decreased [Recovered/Resolved]
  - Head discomfort [Recovered/Resolved]
  - Listless [Recovering/Resolving]
  - Hypertension [Recovering/Resolving]
  - Reduced facial expression [Recovered/Resolved]
  - Encephalopathy [Recovering/Resolving]
  - Sleep disorder [Recovering/Resolving]
  - Mood swings [Recovered/Resolved]
  - Affect lability [Recovered/Resolved]
  - Musculoskeletal foreign body [Recovered/Resolved]
  - Contusion [Recovered/Resolved]
  - Cognitive disorder [Recovered/Resolved]
  - Pelvic fracture [Recovered/Resolved]
  - Dizziness [Recovered/Resolved]
  - Fall [Recovering/Resolving]
  - Fracture [Recovered/Resolved]
  - Hypoacusis [Recovered/Resolved]
  - Poor quality sleep [Recovering/Resolving]
